FAERS Safety Report 8765026 (Version 2)
Quarter: 2012Q4

REPORT INFORMATION
  Report Type: 
  Country: US (occurrence: US)
  Receive Date: 20120903
  Receipt Date: 20120917
  Transmission Date: 20130627
  Serious: Yes (Other)
  Sender: FDA-Public Use
  Company Number: US-BIOGENIDEC-2012BI033113

PATIENT
  Sex: Female

DRUGS (1)
  1. AVONEX [Suspect]
     Indication: MULTIPLE SCLEROSIS
     Route: 030
     Dates: start: 20100818, end: 201206

REACTIONS (7)
  - Injection site discolouration [Unknown]
  - Injection site irritation [Unknown]
  - Cerebrovascular accident [Recovered/Resolved]
  - Memory impairment [Not Recovered/Not Resolved]
  - Conversion disorder [Recovered/Resolved]
  - Hypersensitivity [Recovered/Resolved]
  - Pyrexia [Recovered/Resolved]
